FAERS Safety Report 9521690 (Version 1)
Quarter: 2013Q3

REPORT INFORMATION
  Report Type: Spontaneous
  Country: IT (occurrence: None)
  Receive Date: 20130911
  Receipt Date: 20130911
  Transmission Date: 20140515
  Serious: Yes (Other)
  Sender: FDA-Public Use
  Company Number: NSR_01243_2013

PATIENT
  Age: 85 Year
  Sex: Female

DRUGS (9)
  1. TRAMADOL (TRAMADOL) [Suspect]
     Indication: BACK PAIN
     Dosage: FEW MONTHS
  2. VAXIGRIP [Suspect]
     Indication: ANTIVIRAL PROPHYLAXIS
     Dosage: (DF)
  3. ALLOPURINOL (UNKNOWN) [Concomitant]
  4. CARVEDILOL (UNKNOWN) [Concomitant]
  5. FUROSEMIDE (UNKNOWN) [Concomitant]
  6. TELMISARTAN (UNKNOWN) [Concomitant]
  7. RANITIDINE (UNKNOWN) [Concomitant]
  8. SIMVASTATIN (UNKNOWN) [Concomitant]
  9. BARNIDIPINE (UNKNOWN) [Concomitant]

REACTIONS (6)
  - Hallucination [None]
  - Balance disorder [None]
  - Fall [None]
  - Confusional state [None]
  - Ataxia [None]
  - Drug interaction [None]
